FAERS Safety Report 11389798 (Version 2)
Quarter: 2015Q3

REPORT INFORMATION
  Report Type: Spontaneous
  Country: JP (occurrence: JP)
  Receive Date: 20150817
  Receipt Date: 20150916
  Transmission Date: 20151125
  Serious: Yes (Hospitalization, Other)
  Sender: FDA-Public Use
  Company Number: JP-BRISTOL-MYERS SQUIBB COMPANY-BMS-2015-049249

PATIENT
  Age: 54 Year
  Sex: Male

DRUGS (4)
  1. SUNVEPRA [Suspect]
     Active Substance: ASUNAPREVIR
     Indication: CHRONIC HEPATITIS C
     Dosage: 100 MG, BID
     Route: 048
     Dates: start: 20150701, end: 20150715
  2. PROHEPARUM [Concomitant]
     Active Substance: CHOLINE BITARTRATE\CYSTEINE\INOSITOL\MAMMAL LIVER
     Indication: PRODUCT USED FOR UNKNOWN INDICATION
     Dosage: 3 TAB, QD
     Route: 065
     Dates: end: 20150630
  3. DAKLINZA [Suspect]
     Active Substance: DACLATASVIR
     Indication: CHRONIC HEPATITIS C
     Dosage: 60 MG, QD
     Route: 048
     Dates: start: 20150701, end: 20150715
  4. URSO [Concomitant]
     Active Substance: URSODIOL
     Indication: PRODUCT USED FOR UNKNOWN INDICATION
     Dosage: 300 MG, QD
     Route: 048
     Dates: start: 200102, end: 20150630

REACTIONS (5)
  - Ascites [Recovering/Resolving]
  - Hepatic function abnormal [Recovered/Resolved]
  - Pleural effusion [Recovering/Resolving]
  - Pyrexia [Recovering/Resolving]
  - Cholecystitis acute [Recovered/Resolved]

NARRATIVE: CASE EVENT DATE: 20150711
